FAERS Safety Report 21128057 (Version 1)
Quarter: 2022Q3

REPORT INFORMATION
  Report Type: Spontaneous
  Country: US (occurrence: US)
  Receive Date: 20220725
  Receipt Date: 20220725
  Transmission Date: 20221027
  Serious: No
  Sender: FDA-Public Use
  Company Number: US-ABBVIE-22K-163-4414697-00

PATIENT

DRUGS (3)
  1. SYNTHROID [Suspect]
     Active Substance: LEVOTHYROXINE SODIUM
     Indication: Product used for unknown indication
     Route: 048
     Dates: start: 2002
  2. SYNTHROID [Suspect]
     Active Substance: LEVOTHYROXINE SODIUM
     Route: 048
     Dates: start: 2022, end: 2022
  3. SYNTHROID [Suspect]
     Active Substance: LEVOTHYROXINE SODIUM
     Route: 048
     Dates: start: 2022

REACTIONS (9)
  - Lethargy [Unknown]
  - Amnesia [Unknown]
  - Mood swings [Unknown]
  - Fatigue [Unknown]
  - Decreased appetite [Unknown]
  - Tinnitus [Unknown]
  - Arthralgia [Unknown]
  - Palpitations [Unknown]
  - Heart rate increased [Unknown]
